FAERS Safety Report 6428550-7 (Version None)
Quarter: 2009Q4

REPORT INFORMATION
  Report Type: 
  Country: None (occurrence: None)
  Receive Date: 20091104
  Receipt Date: 20091104
  Transmission Date: 20100525
  Serious: Yes (Hospitalization)
  Sender: FDA-Public Use
  Company Number: None

PATIENT
  Age: 88 Year
  Sex: Male

DRUGS (2)
  1. ASPIRIN [Suspect]
     Indication: CORONARY ARTERY DISEASE
     Dosage: 81 MG EVERY DAY PO
     Route: 048
     Dates: start: 20010903, end: 20090926
  2. ASPIRIN [Suspect]
     Indication: PULMONARY EMBOLISM
     Dosage: 81 MG EVERY DAY PO
     Route: 048
     Dates: start: 20010903, end: 20090926

REACTIONS (4)
  - ANAEMIA [None]
  - ASTHENIA [None]
  - FATIGUE [None]
  - GASTRIC HAEMORRHAGE [None]
